FAERS Safety Report 8573617-0 (Version None)
Quarter: 2012Q2

REPORT INFORMATION
  Report Type: 
  Country: None (occurrence: None)
  Receive Date: 20120423
  Receipt Date: 20091218
  Transmission Date: 20120825
  Serious: Yes (Other)
  Sender: FDA-Public Use
  Company Number: PHEH2009US11296

PATIENT
  Age: 5 Year
  Sex: Male

DRUGS (1)
  1. EXJADE [Suspect]
     Indication: SICKLE CELL ANAEMIA
     Dosage: 375 MG, QD, ORAL
     Route: 048

REACTIONS (11)
  - VOMITING [None]
  - BLOOD LACTATE DEHYDROGENASE INCREASED [None]
  - LIVER DISORDER [None]
  - PROTEIN URINE [None]
  - ALANINE AMINOTRANSFERASE INCREASED [None]
  - TIC [None]
  - ALOPECIA [None]
  - ASPARTATE AMINOTRANSFERASE INCREASED [None]
  - DIARRHOEA [None]
  - COUGH [None]
  - ABDOMINAL PAIN UPPER [None]
